FAERS Safety Report 13323544 (Version 3)
Quarter: 2022Q1

REPORT INFORMATION
  Report Type: Spontaneous
  Country: US (occurrence: US)
  Receive Date: 20170310
  Receipt Date: 20220222
  Transmission Date: 20220424
  Serious: Yes (Hospitalization, Other)
  Sender: FDA-Public Use
  Company Number: US-SHIRE-US201704598

PATIENT
  Age: 40 Year
  Sex: Female
  Weight: 54.422 kg

DRUGS (4)
  1. VYVANSE [Suspect]
     Active Substance: LISDEXAMFETAMINE DIMESYLATE
     Indication: Attention deficit hyperactivity disorder
     Dosage: 50 MG, 1X/DAY:QD
     Route: 048
     Dates: start: 2007
  2. VERAMYST [Concomitant]
     Active Substance: FLUTICASONE FUROATE
     Indication: Hypersensitivity
     Dosage: UNK, UNKNOWN
     Route: 045
  3. VITAMINS                           /00067501/ [Concomitant]
     Indication: Supplementation therapy
     Dosage: UNK, UNKNOWN
     Route: 065
  4. ADDERALL [Concomitant]
     Active Substance: AMPHETAMINE ASPARTATE\AMPHETAMINE SULFATE\DEXTROAMPHETAMINE SACCHARATE\DEXTROAMPHETAMINE SULFATE
     Indication: Adverse event
     Dosage: 15 MG, UNKNOWN
     Route: 065

REACTIONS (7)
  - Vasospasm [Unknown]
  - Chest pain [Unknown]
  - Nausea [Unknown]
  - Dizziness [Unknown]
  - Dyspnoea [Unknown]
  - Intraductal proliferative breast lesion [Unknown]
  - Adverse event [Unknown]

NARRATIVE: CASE EVENT DATE: 20090101
